FAERS Safety Report 20884452 (Version 2)
Quarter: 2022Q2

REPORT INFORMATION
  Report Type: Spontaneous
  Country: US (occurrence: US)
  Receive Date: 20220527
  Receipt Date: 20220615
  Transmission Date: 20220721
  Serious: Yes (Other)
  Sender: FDA-Public Use
  Company Number: US-BAYER-2022A071271

PATIENT
  Age: 5 Year
  Sex: Male

DRUGS (2)
  1. KOGENATE FS [Suspect]
     Active Substance: ANTIHEMOPHILIC FACTOR, HUMAN RECOMBINANT
     Dosage: UNK (1000 UNITS 3 TIMES A WEEK AND PRN)
  2. KOGENATE FS [Suspect]
     Active Substance: ANTIHEMOPHILIC FACTOR, HUMAN RECOMBINANT
     Dosage: UNK (2 EXTRA DOSES TO TREAT THE KNEES BRUISING)
     Dates: start: 20220530, end: 20220530

REACTIONS (5)
  - Traumatic haemorrhage [None]
  - Traumatic haemorrhage [None]
  - Nail discolouration [None]
  - COVID-19 [None]
  - Contusion [None]

NARRATIVE: CASE EVENT DATE: 20220501
